FAERS Safety Report 9402119 (Version 1)
Quarter: 2013Q3

REPORT INFORMATION
  Report Type: Spontaneous
  Country: US (occurrence: US)
  Receive Date: 20130716
  Receipt Date: 20130716
  Transmission Date: 20140515
  Serious: No
  Sender: FDA-Public Use
  Company Number: US-GLAXOSMITHKLINE-A0981248A

PATIENT
  Age: 30 Year
  Sex: Female

DRUGS (1)
  1. NICORETTE MINIS MINT 4 MG [Suspect]
     Indication: EX-TOBACCO USER
     Dates: start: 20120609, end: 20120611

REACTIONS (2)
  - Headache [Recovered/Resolved]
  - Nausea [Recovered/Resolved]
